FAERS Safety Report 18767406 (Version 1)
Quarter: 2021Q1

REPORT INFORMATION
  Report Type: Spontaneous
  Country: US (occurrence: US)
  Receive Date: 20210121
  Receipt Date: 20210121
  Transmission Date: 20210419
  Serious: Yes (Hospitalization)
  Sender: FDA-Public Use
  Company Number: None

PATIENT
  Age: 74 Year
  Sex: Male
  Weight: 106.5 kg

DRUGS (3)
  1. BARICITINIB. [Suspect]
     Active Substance: BARICITINIB
     Indication: COVID-19
     Route: 048
     Dates: start: 20210106, end: 20210112
  2. REMDESIVIR. [Concomitant]
     Active Substance: REMDESIVIR
     Dates: start: 20210104, end: 20210108
  3. DECADRON [Concomitant]
     Active Substance: DEXAMETHASONE
     Dates: start: 20210103, end: 20210118

REACTIONS (6)
  - Infection [None]
  - Oxygen saturation decreased [None]
  - Leukocytosis [None]
  - Pyrexia [None]
  - Respiratory tract infection [None]
  - Stomatococcal infection [None]

NARRATIVE: CASE EVENT DATE: 20210112
